FAERS Safety Report 8045019-7 (Version None)
Quarter: 2012Q1

REPORT INFORMATION
  Report Type: 
  Country: None (occurrence: None)
  Receive Date: 20120113
  Receipt Date: 20120110
  Transmission Date: 20120608
  Serious: Yes (Other)
  Sender: FDA-Public Use
  Company Number: PHEH2006US01233

PATIENT
  Sex: Female

DRUGS (7)
  1. DILAUDID [Concomitant]
  2. ZOFRAN [Concomitant]
  3. TORADOL [Concomitant]
  4. ZOMETA [Suspect]
  5. INVANZ [Concomitant]
  6. ROCEPHIN [Concomitant]
  7. LOVENOX [Concomitant]

REACTIONS (12)
  - OSTEONECROSIS OF JAW [None]
  - DYSURIA [None]
  - ABDOMINAL PAIN [None]
  - NEPHROLITHIASIS [None]
  - RENAL COLIC [None]
  - FLANK PAIN [None]
  - URINARY TRACT INFECTION [None]
  - OBSTRUCTIVE UROPATHY [None]
  - DEEP VEIN THROMBOSIS [None]
  - CALCULUS URETERIC [None]
  - PYELONEPHRITIS [None]
  - BREAST CANCER [None]
